FAERS Safety Report 5072410-3 (Version None)
Quarter: 2006Q3

REPORT INFORMATION
  Report Type: 
  Country: None (occurrence: None)
  Receive Date: 20060807
  Receipt Date: 20060613
  Transmission Date: 20061208
  Serious: Yes (Hospitalization)
  Sender: FDA-Public Use
  Company Number: PHHO2006US09734

PATIENT
  Age: 69 Year
  Sex: Male
  Weight: 145 kg

DRUGS (3)
  1. ZOLEDRONIC ACID VS ALEDRONATE [Suspect]
     Indication: OSTEOPOROSIS
     Dosage: INTRAVENOUS + ORAL
     Dates: start: 20041101, end: 20051021
  2. CALCIUM CARBONATE [Concomitant]
  3. VITAMIN D [Concomitant]

REACTIONS (8)
  - ATELECTASIS [None]
  - GASTRIC ULCER [None]
  - GASTRITIS [None]
  - GASTROINTESTINAL HAEMORRHAGE [None]
  - HAEMATOCHEZIA [None]
  - OESOPHAGEAL STENOSIS [None]
  - OESOPHAGITIS [None]
  - PNEUMONIA [None]
